FAERS Safety Report 8316602-6 (Version None)
Quarter: 2012Q2

REPORT INFORMATION
  Report Type: 
  Country: None (occurrence: None)
  Receive Date: 20120424
  Receipt Date: 20120424
  Transmission Date: 20120825
  Serious: No
  Sender: FDA-Public Use
  Company Number: None

PATIENT
  Age: 50 Year
  Sex: Female
  Weight: 131.6 kg

DRUGS (16)
  1. PANTOPRAZOLE [Concomitant]
  2. SERTRALINE HYDROCHLORIDE [Concomitant]
  3. POLYTHEYLENE GLYCOL [Concomitant]
  4. FLUOROURACIL [Suspect]
     Indication: COLON CANCER STAGE IV
     Dates: start: 20120328
  5. HEPARIN [Concomitant]
  6. OXYCODONE/ACETAMINOPHEN [Concomitant]
  7. DIPHENHYDRAMINE HCL [Concomitant]
  8. DOCUSATE [Concomitant]
  9. METHADONE HCL [Concomitant]
  10. ACETAMINOPHEN [Concomitant]
  11. ALUMINUM/MAGNESIUM/SIMETHICONE [Concomitant]
  12. METOPROLOL TARTRATE [Concomitant]
  13. ONDANSETRON [Concomitant]
  14. IRINOTECAN HCL [Suspect]
     Indication: COLON CANCER STAGE IV
     Dates: start: 20120328
  15. SENNA-MINT WAF [Concomitant]
  16. SODIUM PHOSPHATES ENEMA [Concomitant]

REACTIONS (3)
  - ABDOMINAL PAIN [None]
  - RASH [None]
  - PRURITUS GENERALISED [None]
